FAERS Safety Report 7906832-7 (Version None)
Quarter: 2011Q4

REPORT INFORMATION
  Report Type: 
  Country: None (occurrence: None)
  Receive Date: 20111110
  Receipt Date: 20111022
  Transmission Date: 20120403
  Serious: Yes (Hospitalization, Other)
  Sender: FDA-Public Use
  Company Number: CA-ELI_LILLY_AND_COMPANY-CA201110006164

PATIENT
  Age: 87 Year
  Sex: Female

DRUGS (6)
  1. VITAMIN D [Concomitant]
  2. FORTEO [Suspect]
     Indication: OSTEOPOROSIS
     Dosage: 20 UG, QD
     Route: 058
     Dates: start: 20110924, end: 20111001
  3. ASPIRIN [Concomitant]
  4. SIMPONI [Concomitant]
  5. TRAMADOL HYDROCHLORIDE/ACETAMINOPHEN [Concomitant]
  6. CALCIUM [Concomitant]

REACTIONS (6)
  - LIMB INJURY [None]
  - INFECTION [None]
  - CLOSTRIDIAL INFECTION [None]
  - BLOOD CREATININE DECREASED [None]
  - RENAL FAILURE [None]
  - LACERATION [None]
